FAERS Safety Report 12807530 (Version 1)
Quarter: 2016Q4

REPORT INFORMATION
  Report Type: Spontaneous
  Country: JP (occurrence: JP)
  Receive Date: 20161004
  Receipt Date: 20161004
  Transmission Date: 20170207
  Serious: Yes (Death, Hospitalization, Other)
  Sender: FDA-Public Use
  Company Number: JP-SEBELA IRELAND LIMITED-2016SEB01476

PATIENT
  Age: 68 Year
  Sex: Male

DRUGS (2)
  1. ALLOPURINOL. [Suspect]
     Active Substance: ALLOPURINOL
     Indication: HYPERURICAEMIA
     Dosage: 200 MG, 1X/DAY
     Route: 065
  2. CARDIOVASCULAR DRUGS [Concomitant]
     Active Substance: UNSPECIFIED INGREDIENT
     Route: 065

REACTIONS (6)
  - Device related infection [Fatal]
  - Drug reaction with eosinophilia and systemic symptoms [Unknown]
  - Renal impairment [Not Recovered/Not Resolved]
  - Human herpesvirus 6 infection [Unknown]
  - Agranulocytosis [Unknown]
  - Septic shock [Fatal]
